FAERS Safety Report 20804480 (Version 2)
Quarter: 2022Q2

REPORT INFORMATION
  Report Type: Report from Study
  Country: US (occurrence: US)
  Receive Date: 20220509
  Receipt Date: 20220610
  Transmission Date: 20220721
  Serious: Yes (Death, Other)
  Sender: FDA-Public Use
  Company Number: US-EXELIXIS-CABO-22051625

PATIENT
  Age: 85 Year
  Sex: Male

DRUGS (1)
  1. CABOMETYX [Suspect]
     Active Substance: CABOZANTINIB S-MALATE
     Indication: Neoplasm malignant
     Dosage: 40 MG, QD
     Route: 048
     Dates: start: 202204, end: 202205

REACTIONS (5)
  - Fall [Unknown]
  - Eye injury [Unknown]
  - Thrombosis [Fatal]
  - Dysstasia [Unknown]
  - Glossodynia [Unknown]

NARRATIVE: CASE EVENT DATE: 20220429
